FAERS Safety Report 9074516 (Version 1)
Quarter: 2013Q1

REPORT INFORMATION
  Report Type: Report from Study
  Country: US (occurrence: US)
  Receive Date: 20130129
  Receipt Date: 20130129
  Transmission Date: 20140127
  Serious: No
  Sender: FDA-Public Use
  Company Number: US-ABBOTT-12P-163-0930550-00

PATIENT
  Sex: Female
  Weight: 59.02 kg

DRUGS (6)
  1. HUMIRA 40 MG/0.8 ML PEN [Suspect]
     Indication: RHEUMATOID ARTHRITIS
     Dates: start: 20120305
  2. AZOTHIAPRINE [Concomitant]
     Indication: RHEUMATOID ARTHRITIS
  3. ASACOL [Concomitant]
     Indication: COLITIS ULCERATIVE
  4. EXFORGE [Concomitant]
     Indication: HYPERTENSION
  5. SINGULAIR [Concomitant]
     Indication: SEASONAL ALLERGY
  6. ALLEGRA [Concomitant]
     Indication: SEASONAL ALLERGY

REACTIONS (2)
  - Arthralgia [Not Recovered/Not Resolved]
  - Fatigue [Not Recovered/Not Resolved]
